FAERS Safety Report 7920505-6 (Version None)
Quarter: 2011Q4

REPORT INFORMATION
  Report Type: 
  Country: None (occurrence: None)
  Receive Date: 20111117
  Receipt Date: 20111111
  Transmission Date: 20120403
  Serious: Yes (Death, Life-Threatening, Hospitalization)
  Sender: FDA-Public Use
  Company Number: KR-CEPHALON-2011000336

PATIENT
  Sex: Female

DRUGS (21)
  1. BENDAMUSTINE HCL [Suspect]
     Route: 042
     Dates: start: 20110216, end: 20110217
  2. ACETYLSALICYLIC ACID SRT [Concomitant]
     Dates: start: 20080513
  3. TRIMETAZIDINE HYDROCHLORIDE [Concomitant]
     Dates: start: 20080513
  4. GRANISETRON HCL [Concomitant]
     Dates: start: 20110112, end: 20110115
  5. MEROPENEM [Concomitant]
     Dates: start: 20110307, end: 20110308
  6. ACETAMINOPHEN [Concomitant]
     Dates: start: 20110111, end: 20110111
  7. METHYLPREDNISOLONE SODIUM SUCCINATE [Concomitant]
     Dates: start: 20110228, end: 20110308
  8. DEXTROMETHORPHAN HYDROBROMIDE [Concomitant]
     Dates: start: 20110304, end: 20110308
  9. IPRATROPIUM BROMIDE [Concomitant]
     Dates: start: 20110306, end: 20110309
  10. BENDAMUSTINE HCL [Suspect]
     Indication: DIFFUSE LARGE B-CELL LYMPHOMA RECURRENT
     Route: 041
     Dates: start: 20110112, end: 20110113
  11. DEXAMETHASONE [Concomitant]
     Dates: start: 20110111, end: 20110115
  12. PREDNISOLONE [Concomitant]
     Dates: start: 20110305, end: 20110306
  13. RITUXIMAB [Suspect]
     Indication: DIFFUSE LARGE B-CELL LYMPHOMA RECURRENT
     Route: 041
     Dates: start: 20110111, end: 20110111
  14. CIMETIDINE [Concomitant]
     Dates: start: 20110114, end: 20110115
  15. CHLORHEXIDINE GLUCONATE [Concomitant]
     Dates: start: 20110217, end: 20110223
  16. PREDNISOLONE ACETATE [Concomitant]
     Dates: start: 20110308, end: 20110308
  17. RITUXIMAB [Suspect]
     Route: 041
     Dates: start: 20110215, end: 20110215
  18. DILTIAZEM HCL [Concomitant]
     Dates: start: 20080513
  19. CHLORPHENIRAMINE MALEATE [Concomitant]
     Dates: start: 20110111, end: 20110111
  20. SUCRALFATE [Concomitant]
     Dates: start: 20110114, end: 20110115
  21. DIHYDROCODEINE PHOSPHATE [Concomitant]
     Dates: start: 20110306, end: 20110309

REACTIONS (3)
  - CONSTIPATION [None]
  - RESPIRATORY FAILURE [None]
  - PNEUMONIA [None]
